FAERS Safety Report 16324714 (Version 1)
Quarter: 2019Q2

REPORT INFORMATION
  Report Type: Spontaneous
  Country: US (occurrence: US)
  Receive Date: 20190517
  Receipt Date: 20190517
  Transmission Date: 20190711
  Serious: No
  Sender: FDA-Public Use
  Company Number: US-ENDO PHARMACEUTICALS INC-2019-102292

PATIENT
  Age: 2 Year
  Sex: Male

DRUGS (1)
  1. VIGABATRIN. [Suspect]
     Active Substance: VIGABATRIN
     Indication: PRODUCT USED FOR UNKNOWN INDICATION
     Dosage: 1.3 PACKAGES BY MOUTH TWICE DAILY
     Route: 048

REACTIONS (1)
  - Gastrointestinal tube insertion [Unknown]

NARRATIVE: CASE EVENT DATE: 20190301
